FAERS Safety Report 18760953 (Version 2)
Quarter: 2025Q3

REPORT INFORMATION
  Report Type: Spontaneous
  Country: EU (occurrence: EU)
  Receive Date: 20210120
  Receipt Date: 20250702
  Transmission Date: 20251021
  Serious: Yes (Other)
  Sender: BAXTER
  Company Number: EU-EMA-DD-20210108-PRABHAKAR_D-224146

PATIENT
  Age: 64 Year
  Sex: Male

DRUGS (42)
  1. CYCLOPHOSPHAMIDE [Suspect]
     Active Substance: CYCLOPHOSPHAMIDE
     Indication: Diffuse large B-cell lymphoma
     Route: 065
     Dates: start: 200704
  2. CYCLOPHOSPHAMIDE [Suspect]
     Active Substance: CYCLOPHOSPHAMIDE
     Indication: Lymphocyte adoptive therapy
     Route: 065
     Dates: start: 201611, end: 201704
  3. CYCLOPHOSPHAMIDE [Suspect]
     Active Substance: CYCLOPHOSPHAMIDE
     Route: 065
     Dates: start: 20191223, end: 20191224
  4. DOXORUBICIN [Suspect]
     Active Substance: DOXORUBICIN
     Indication: Diffuse large B-cell lymphoma
     Route: 065
     Dates: start: 200704
  5. DOXORUBICIN [Suspect]
     Active Substance: DOXORUBICIN
     Route: 065
     Dates: start: 201611, end: 201704
  6. IFOSFAMIDE [Suspect]
     Active Substance: IFOSFAMIDE
     Indication: Diffuse large B-cell lymphoma
     Route: 065
     Dates: start: 201007, end: 201009
  7. CARMUSTINE [Suspect]
     Active Substance: CARMUSTINE
     Indication: Diffuse large B-cell lymphoma
     Route: 065
     Dates: start: 201903
  8. CARMUSTINE [Suspect]
     Active Substance: CARMUSTINE
     Route: 065
     Dates: start: 20201018
  9. CYTARABINE [Suspect]
     Active Substance: CYTARABINE
     Indication: Diffuse large B-cell lymphoma
     Route: 065
     Dates: start: 201209, end: 201211
  10. CYTARABINE [Suspect]
     Active Substance: CYTARABINE
     Route: 065
     Dates: start: 201903
  11. CYTARABINE [Suspect]
     Active Substance: CYTARABINE
     Route: 065
     Dates: start: 20201018
  12. CISPLATIN [Suspect]
     Active Substance: CISPLATIN
     Indication: Diffuse large B-cell lymphoma
     Route: 065
     Dates: start: 201209, end: 201211
  13. CISPLATIN [Suspect]
     Active Substance: CISPLATIN
     Route: 065
     Dates: start: 201812
  14. MELPHALAN [Suspect]
     Active Substance: MELPHALAN
     Indication: Diffuse large B-cell lymphoma
     Route: 065
     Dates: start: 201903
  15. MELPHALAN [Suspect]
     Active Substance: MELPHALAN
     Route: 065
     Dates: start: 20201018
  16. PREDNISONE [Suspect]
     Active Substance: PREDNISONE
     Indication: Diffuse large B-cell lymphoma
     Route: 065
     Dates: start: 200704
  17. PREDNISONE [Suspect]
     Active Substance: PREDNISONE
     Route: 065
     Dates: start: 201611, end: 201704
  18. DEXAMETHASONE [Suspect]
     Active Substance: DEXAMETHASONE
     Indication: Diffuse large B-cell lymphoma
     Route: 065
     Dates: start: 201209, end: 201211
  19. DEXAMETHASONE [Suspect]
     Active Substance: DEXAMETHASONE
     Route: 065
     Dates: start: 201812
  20. ETOPOSIDE [Suspect]
     Active Substance: ETOPOSIDE
     Indication: Diffuse large B-cell lymphoma
     Route: 065
     Dates: start: 201007, end: 201009
  21. ETOPOSIDE [Suspect]
     Active Substance: ETOPOSIDE
     Route: 065
     Dates: start: 20201018
  22. ETOPOSIDE [Suspect]
     Active Substance: ETOPOSIDE
     Route: 065
     Dates: start: 201903
  23. CARBOPLATIN [Suspect]
     Active Substance: CARBOPLATIN
     Indication: Diffuse large B-cell lymphoma
     Route: 065
     Dates: start: 201007, end: 201009
  24. BENDAMUSTINE [Suspect]
     Active Substance: BENDAMUSTINE
     Indication: Diffuse large B-cell lymphoma
     Route: 065
     Dates: start: 201405
  25. BENDAMUSTINE [Suspect]
     Active Substance: BENDAMUSTINE
     Route: 065
     Dates: start: 201809
  26. BENDAMUSTINE [Suspect]
     Active Substance: BENDAMUSTINE
     Route: 065
     Dates: start: 20191205
  27. RITUXIMAB [Suspect]
     Active Substance: RITUXIMAB
     Indication: Diffuse large B-cell lymphoma
     Route: 058
     Dates: start: 20100701
  28. RITUXIMAB [Suspect]
     Active Substance: RITUXIMAB
     Route: 058
     Dates: start: 20120901
  29. RITUXIMAB [Suspect]
     Active Substance: RITUXIMAB
     Route: 058
     Dates: start: 20140501
  30. RITUXIMAB [Suspect]
     Active Substance: RITUXIMAB
     Route: 065
     Dates: start: 201611, end: 201704
  31. RITUXIMAB [Suspect]
     Active Substance: RITUXIMAB
     Route: 065
     Dates: start: 201812
  32. RITUXIMAB [Suspect]
     Active Substance: RITUXIMAB
     Route: 065
     Dates: start: 20191205
  33. RITUXIMAB [Suspect]
     Active Substance: RITUXIMAB
     Route: 065
     Dates: start: 202005, end: 202007
  34. RITUXIMAB [Suspect]
     Active Substance: RITUXIMAB
     Route: 065
     Dates: start: 202009, end: 202010
  35. VINCRISTINE [Suspect]
     Active Substance: VINCRISTINE
     Indication: Diffuse large B-cell lymphoma
     Route: 065
     Dates: start: 200704
  36. VINCRISTINE SULFATE [Suspect]
     Active Substance: VINCRISTINE SULFATE
     Indication: Diffuse large B-cell lymphoma
     Route: 065
     Dates: start: 201611, end: 201704
  37. GEMCITABINE [Suspect]
     Active Substance: GEMCITABINE
     Indication: Diffuse large B-cell lymphoma
     Route: 065
     Dates: start: 201812
  38. OBINUTUZUMAB [Suspect]
     Active Substance: OBINUTUZUMAB
     Indication: Diffuse large B-cell lymphoma
     Route: 065
     Dates: start: 201809
  39. POLATUZUMAB VEDOTIN [Suspect]
     Active Substance: POLATUZUMAB VEDOTIN
     Indication: Diffuse large B-cell lymphoma
     Route: 065
     Dates: start: 20191205
  40. POLATUZUMAB VEDOTIN [Suspect]
     Active Substance: POLATUZUMAB VEDOTIN
     Route: 065
     Dates: start: 202005, end: 202007
  41. POLATUZUMAB VEDOTIN [Suspect]
     Active Substance: POLATUZUMAB VEDOTIN
     Route: 065
     Dates: start: 202009, end: 202010
  42. FLUDARABINE [Suspect]
     Active Substance: FLUDARABINE PHOSPHATE
     Indication: Lymphocyte adoptive therapy
     Route: 065
     Dates: start: 20191223, end: 20191224

REACTIONS (9)
  - B-cell lymphoma recurrent [Unknown]
  - Ill-defined disorder [Unknown]
  - Ill-defined disorder [Unknown]
  - Diffuse large B-cell lymphoma [Unknown]
  - Lymphadenopathy [Unknown]
  - Pancytopenia [Unknown]
  - Myelosuppression [Unknown]
  - Intentional product use issue [Unknown]
  - Off label use [Unknown]

NARRATIVE: CASE EVENT DATE: 20200803
